FAERS Safety Report 4756070-4 (Version None)
Quarter: 2005Q3

REPORT INFORMATION
  Report Type: 
  Country: None (occurrence: None)
  Receive Date: 20050829
  Receipt Date: 20050829
  Transmission Date: 20060218
  Serious: Yes (Death, Hospitalization)
  Sender: FDA-Public Use
  Company Number: None

PATIENT
  Sex: Male
  Weight: 86.6 kg

DRUGS (15)
  1. CYCLOPHOSPHAMIDE [Suspect]
     Indication: BONE MARROW DISORDER
     Dosage: SEE IMAGE
     Route: 042
     Dates: start: 20050727
  2. CYCLOPHOSPHAMIDE [Suspect]
     Indication: BONE MARROW DISORDER
     Dosage: SEE IMAGE
     Route: 042
     Dates: start: 20050816
  3. ALLOPURINOL [Suspect]
     Dosage: SEE IMAGE
     Route: 048
  4. DAUNORUBICIN HCL [Suspect]
     Dosage: SEE IMAGE
     Route: 042
     Dates: start: 20050729
  5. VINCRISTINE [Suspect]
     Dosage: SEE IMAGE
     Route: 042
     Dates: start: 20050811
  6. DEXAMETHASONE [Suspect]
     Dosage: SEE IMAGE
     Route: 042
  7. L-ASPARAGINASE [Suspect]
     Dosage: SEE IMAGE
     Route: 058
     Dates: start: 20050814
  8. G-CSF [Suspect]
     Dosage: SEE IMAGE
     Route: 058
  9. METHOTREXATE [Suspect]
     Dosage: SEE IMAGE
  10. CYCLOPHOSPHAMIDE [Suspect]
     Dosage: SEE IMAGE
  11. CYTARABINE [Suspect]
     Dosage: SEE IMAGE
     Route: 042
  12. L-ASPARAGINASE [Suspect]
     Dosage: SEE IMAGE
     Route: 058
  13. DEXAMETHASONE [Suspect]
     Dosage: SEE IMAGE
  14. G-CSF [Suspect]
     Dosage: SEE IMAGE
     Route: 058
  15. COTRIMOXAZOLE DS [Suspect]
     Dosage: SEE IMAGE
     Route: 048

REACTIONS (10)
  - ACTIVATED PARTIAL THROMBOPLASTIN TIME ABNORMAL [None]
  - CLOSTRIDIUM COLITIS [None]
  - CONVULSION [None]
  - DYSPNOEA [None]
  - HYPERBILIRUBINAEMIA [None]
  - HYPOCALCAEMIA [None]
  - INTERNATIONAL NORMALISED RATIO ABNORMAL [None]
  - LIVER DISORDER [None]
  - NEUTROPHIL COUNT DECREASED [None]
  - SEPSIS [None]
